FAERS Safety Report 7474761-1 (Version None)
Quarter: 2011Q2

REPORT INFORMATION
  Report Type: 
  Country: None (occurrence: None)
  Receive Date: 20110512
  Receipt Date: 20110502
  Transmission Date: 20111010
  Serious: Yes (Death)
  Sender: FDA-Public Use
  Company Number: FR-CELGENEUS-056-50794-11050246

PATIENT
  Age: 15 Year
  Sex: Female

DRUGS (1)
  1. VIDAZA [Suspect]
     Route: 065

REACTIONS (2)
  - DISEASE PROGRESSION [None]
  - DEATH [None]
